FAERS Safety Report 6497399-1 (Version None)
Quarter: 2009Q4

REPORT INFORMATION
  Report Type: 
  Country: None (occurrence: None)
  Receive Date: 20091211
  Receipt Date: 20091125
  Transmission Date: 20100525
  Serious: Yes (Hospitalization, Other)
  Sender: FDA-Public Use
  Company Number: JHP200900446

PATIENT
  Age: 26 Year
  Sex: Female

DRUGS (1)
  1. KETALAR [Suspect]
     Indication: DRUG ABUSE
     Dosage: 1 G, DAILY, INHALATION
     Route: 055

REACTIONS (7)
  - BLADDER DISORDER [None]
  - CULTURE URINE POSITIVE [None]
  - DRUG ABUSE [None]
  - HYDRONEPHROSIS [None]
  - HYPERTONIC BLADDER [None]
  - PYURIA [None]
  - REDUCED BLADDER CAPACITY [None]
